FAERS Safety Report 8605787-X (Version None)
Quarter: 2012Q3

REPORT INFORMATION
  Report Type: 
  Country: None (occurrence: None)
  Receive Date: 20120820
  Receipt Date: 20120815
  Transmission Date: 20120928
  Serious: Yes (Other)
  Sender: FDA-Public Use
  Company Number: US-AMGEN-USASP2012051984

PATIENT
  Sex: Female

DRUGS (1)
  1. XGEVA [Suspect]
     Indication: LUNG CANCER METASTATIC

REACTIONS (2)
  - TOOTH DISORDER [None]
  - OSTEONECROSIS OF JAW [None]
